FAERS Safety Report 18754406 (Version 1)
Quarter: 2021Q1

REPORT INFORMATION
  Report Type: Other
  Country: DE (occurrence: DE)
  Receive Date: 20210119
  Receipt Date: 20210119
  Transmission Date: 20210419
  Serious: Yes (Other)
  Sender: FDA-Public Use
  Company Number: DE-ROCHE-2751226

PATIENT
  Sex: Female

DRUGS (5)
  1. BEVACIZUMAB. [Suspect]
     Active Substance: BEVACIZUMAB
     Route: 065
     Dates: start: 201705
  2. BEVACIZUMAB. [Suspect]
     Active Substance: BEVACIZUMAB
     Route: 065
     Dates: start: 201810
  3. BEVACIZUMAB. [Suspect]
     Active Substance: BEVACIZUMAB
     Route: 065
     Dates: start: 201605, end: 201704
  4. BEVACIZUMAB. [Suspect]
     Active Substance: BEVACIZUMAB
     Route: 065
     Dates: start: 201208, end: 201605
  5. BEVACIZUMAB. [Suspect]
     Active Substance: BEVACIZUMAB
     Indication: RESPIRATORY PAPILLOMA
     Route: 065
     Dates: start: 201201, end: 201203

REACTIONS (2)
  - Squamous cell carcinoma of lung [Unknown]
  - Malignant transformation [Unknown]
